FAERS Safety Report 19617743 (Version 2)
Quarter: 2021Q3

REPORT INFORMATION
  Report Type: Other
  Country: US (occurrence: US)
  Receive Date: 20210727
  Receipt Date: 20210826
  Transmission Date: 20211014
  Serious: Yes (Death)
  Sender: FDA-Public Use
  Company Number: US-NEUROCRINE BIOSCIENCES INC.-2021NBI03962

PATIENT

DRUGS (17)
  1. HALOPERIDOL LACTATE. [Concomitant]
     Active Substance: HALOPERIDOL LACTATE
     Indication: HALLUCINATION, VISUAL
     Dosage: 1 MILLIGRAM, EVERY 3 HOURS AS NEEDED
     Route: 048
     Dates: start: 20191210
  2. INGREZZA [Suspect]
     Active Substance: VALBENAZINE
     Dosage: 80 MILLIGRAM, QD
     Route: 048
     Dates: start: 20190823, end: 20191120
  3. MIRALAX [Concomitant]
     Active Substance: POLYETHYLENE GLYCOL 3350
     Indication: CONSTIPATION
     Dosage: 17 GRAM, QD
     Route: 048
     Dates: start: 20170124
  4. INGREZZA [Suspect]
     Active Substance: VALBENAZINE
     Dosage: 40 MILLIGRAM, QD
     Route: 048
     Dates: start: 20191121, end: 20200517
  5. MEDROXYPROGESTERONE ACETATE. [Concomitant]
     Active Substance: MEDROXYPROGESTERONE ACETATE
     Indication: AMENORRHOEA
     Dosage: 1 MILLILITER, EVERY 3 MONTHS
     Route: 030
     Dates: start: 20190219
  6. QUETIAPINE FUMARATE. [Concomitant]
     Active Substance: QUETIAPINE FUMARATE
     Indication: SLEEP TERROR
     Dosage: 50 MILLIGRAM, QD (EVERY MORNING)
     Route: 048
     Dates: start: 20200320
  7. HYOSCYAMINE SULFATE. [Concomitant]
     Active Substance: HYOSCYAMINE SULFATE
     Indication: ABDOMINAL PAIN
     Dosage: 0.125 MILLIGRAM, TID AS NEEDED
     Route: 060
     Dates: start: 20190823
  8. BACLOFEN. [Concomitant]
     Active Substance: BACLOFEN
     Indication: HUNTINGTON^S DISEASE
     Dosage: 10 MILLIGRAM, QID
     Route: 048
     Dates: start: 20180525
  9. INGREZZA [Suspect]
     Active Substance: VALBENAZINE
     Indication: HUNTINGTON^S DISEASE
     Dosage: 80 MILLIGRAM, QD
     Route: 048
     Dates: start: 20200523, end: 20210720
  10. VITAMIN B12 [Concomitant]
     Active Substance: CYANOCOBALAMIN
     Dosage: 100 MICROGRAM
     Route: 048
     Dates: start: 20180725
  11. TRAZODONE HYDROCHLORIDE. [Concomitant]
     Active Substance: TRAZODONE HYDROCHLORIDE
     Indication: INSOMNIA
     Dosage: 100 MILLIGRAM, QHS
     Route: 048
     Dates: start: 20190823
  12. QUETIAPINE FUMARATE. [Concomitant]
     Active Substance: QUETIAPINE FUMARATE
     Indication: INSOMNIA
     Dosage: 200 MILLIGRAM, QHS
     Route: 048
     Dates: start: 20181114
  13. QUETIAPINE FUMARATE. [Concomitant]
     Active Substance: QUETIAPINE FUMARATE
     Indication: HALLUCINATION, VISUAL
  14. SINEMET [Concomitant]
     Active Substance: CARBIDOPA\LEVODOPA
     Indication: HUNTINGTON^S DISEASE
     Dosage: 1 DOSAGE FORM, QID
     Route: 048
     Dates: start: 20130228
  15. HYOSCYAMINE SULFATE. [Concomitant]
     Active Substance: HYOSCYAMINE SULFATE
     Indication: HUNTINGTON^S DISEASE
  16. ATROPINE SULFATE. [Concomitant]
     Active Substance: ATROPINE SULFATE
     Indication: ROUTINE HEALTH MAINTENANCE
     Dosage: 1?2 DROPS, QID (INTO AFFECTED EYE(S))
     Route: 047
  17. IPRATROPIUM/ALBUTEROL [Concomitant]
     Active Substance: ALBUTEROL\IPRATROPIUM
     Indication: BRONCHOSPASM
     Dosage: UNK UNK, QID

REACTIONS (2)
  - Huntington^s disease [Fatal]
  - Off label use [Unknown]
